FAERS Safety Report 23191793 (Version 1)
Quarter: 2023Q4

REPORT INFORMATION
  Report Type: Other
  Country: PL (occurrence: PL)
  Receive Date: 20231116
  Receipt Date: 20231116
  Transmission Date: 20240109
  Serious: Yes (Other)
  Sender: FDA-Public Use
  Company Number: None

PATIENT

DRUGS (7)
  1. PEGASPARGASE [Suspect]
     Active Substance: PEGASPARGASE
     Indication: T-cell type acute leukaemia
     Dosage: 2000 IU/M2
     Route: 065
  2. DARZALEX [Suspect]
     Active Substance: DARATUMUMAB
     Indication: T-cell type acute leukaemia
     Dosage: 16 MG/KG, EVERY 2 WEEKS, 3 DOSES
     Route: 042
  3. VELCADE [Suspect]
     Active Substance: BORTEZOMIB
     Indication: T-cell type acute leukaemia
     Dosage: 1 MG/M2, 1/2 WEEK (7 DOSES X 1 MG/M2)
     Route: 058
  4. VENETOCLAX [Suspect]
     Active Substance: VENETOCLAX
     Indication: T-cell type acute leukaemia
     Dosage: 200 MG
     Route: 065
  5. NELARABINE [Suspect]
     Active Substance: NELARABINE
     Indication: T-cell type acute leukaemia
     Dosage: 1500 MG/M2
     Route: 065
  6. METHOTREXATE [Concomitant]
     Active Substance: METHOTREXATE
     Indication: Nervous system disorder prophylaxis
     Dosage: 15 MG/ARA-C 40 MG TWICE
     Route: 037
  7. DEXAMETHASONE [Concomitant]
     Active Substance: DEXAMETHASONE
     Indication: Nervous system disorder prophylaxis
     Dosage: 20 MG
     Route: 037

REACTIONS (2)
  - Neutropenia [Unknown]
  - Nausea [Unknown]
